FAERS Safety Report 11264174 (Version 1)
Quarter: 2015Q3

REPORT INFORMATION
  Report Type: Spontaneous
  Country: US (occurrence: None)
  Receive Date: 20150710
  Receipt Date: 20150710
  Transmission Date: 20151125
  Serious: Yes (Other)
  Sender: FDA-Public Use
  Company Number: None

PATIENT
  Age: 74 Year
  Sex: Female

DRUGS (1)
  1. ACTHAR [Suspect]
     Active Substance: CORTICOTROPIN
     Indication: JOINT ANKYLOSIS
     Dosage: 80 UNITS  2X WEEKLY  INJ UNDER THE SKIN
     Route: 058
     Dates: start: 20150428

REACTIONS (3)
  - Mouth swelling [None]
  - Tooth extraction [None]
  - Pyrexia [None]

NARRATIVE: CASE EVENT DATE: 20150701
